FAERS Safety Report 5129098-2 (Version None)
Quarter: 2006Q4

REPORT INFORMATION
  Report Type: 
  Country: None (occurrence: None)
  Receive Date: 20061016
  Receipt Date: 20061016
  Transmission Date: 20070319
  Serious: Yes (Other)
  Sender: FDA-Public Use
  Company Number: None

PATIENT
  Age: 70 Year
  Sex: Male
  Weight: 122.4712 kg

DRUGS (1)
  1. ELIDEL [Suspect]

REACTIONS (2)
  - ILL-DEFINED DISORDER [None]
  - SKIN EXFOLIATION [None]
